FAERS Safety Report 8542274-1 (Version None)
Quarter: 2012Q3

REPORT INFORMATION
  Report Type: 
  Country: None (occurrence: None)
  Receive Date: 20120726
  Receipt Date: 20120723
  Transmission Date: 20120928
  Serious: No
  Sender: FDA-Public Use
  Company Number: US-PFIZER INC-2010165275

PATIENT
  Sex: Female
  Weight: 56 kg

DRUGS (5)
  1. LEVOTHYROXINE [Concomitant]
     Indication: THYROID DISORDER
     Dosage: 50 UG, DAILY
  2. LIPITOR [Suspect]
     Indication: BLOOD CHOLESTEROL ABNORMAL
     Dosage: 20 MG, 1X/DAY
     Route: 048
  3. LIPITOR [Suspect]
     Dosage: UNK, DAILY
     Route: 048
  4. ASPIRIN [Concomitant]
     Dosage: 81 MG, ONCE A DAY AT NIGHT
  5. LIPITOR [Suspect]
     Indication: BLOOD CHOLESTEROL INCREASED
     Dosage: 20 MG, 1X/DAY
     Route: 048
     Dates: start: 19980101

REACTIONS (2)
  - DYSGEUSIA [None]
  - COUNTERFEIT DRUG ADMINISTERED [None]
